FAERS Safety Report 15118766 (Version 1)
Quarter: 2018Q3

REPORT INFORMATION
  Report Type: Spontaneous
  Country: FR (occurrence: FR)
  Receive Date: 20180709
  Receipt Date: 20180709
  Transmission Date: 20181010
  Serious: Yes (Hospitalization)
  Sender: FDA-Public Use
  Company Number: FR-KRKA, D.D., NOVO MESTO-2051549

PATIENT
  Age: 65 Year
  Sex: Female
  Weight: 94 kg

DRUGS (13)
  1. LEVEMIR [Concomitant]
     Active Substance: INSULIN DETEMIR
  2. REPAGLINIDE. [Suspect]
     Active Substance: REPAGLINIDE
     Route: 048
  3. IZALGI [Suspect]
     Active Substance: ACETAMINOPHEN\OPIUM
     Route: 048
  4. COVERSYL [Suspect]
     Active Substance: PERINDOPRIL
     Route: 048
  5. METFORMIN HYDROCHLORIDE. [Suspect]
     Active Substance: METFORMIN HYDROCHLORIDE
     Route: 048
  6. GALVUS [Suspect]
     Active Substance: VILDAGLIPTIN
     Route: 048
  7. LANSOPRAZOLE. [Suspect]
     Active Substance: LANSOPRAZOLE
     Indication: PRODUCT USED FOR UNKNOWN INDICATION
     Route: 048
  8. ACARBOSE. [Suspect]
     Active Substance: ACARBOSE
     Route: 048
  9. CELEBREX [Suspect]
     Active Substance: CELECOXIB
     Route: 048
  10. FLUOXETINE [Suspect]
     Active Substance: FLUOXETINE HYDROCHLORIDE
     Route: 048
  11. BILASTINE [Suspect]
     Active Substance: BILASTINE
     Route: 048
  12. FORTZAAR [Suspect]
     Active Substance: HYDROCHLOROTHIAZIDE\LOSARTAN POTASSIUM
     Route: 048
  13. FUROSEMIDE. [Concomitant]
     Active Substance: FUROSEMIDE

REACTIONS (2)
  - Acute kidney injury [Recovering/Resolving]
  - Lactic acidosis [Recovered/Resolved]

NARRATIVE: CASE EVENT DATE: 20180520
